FAERS Safety Report 6665617-2 (Version None)
Quarter: 2010Q2

REPORT INFORMATION
  Report Type: 
  Country: None (occurrence: None)
  Receive Date: 20100402
  Receipt Date: 20100329
  Transmission Date: 20101027
  Serious: Yes (Other)
  Sender: FDA-Public Use
  Company Number: US-ELI_LILLY_AND_COMPANY-US201003007624

PATIENT
  Sex: Male

DRUGS (10)
  1. HUMALOG [Suspect]
     Indication: DIABETES MELLITUS
     Dosage: 44 U, 3/D
  2. HUMALOG [Suspect]
     Dosage: 10 U, AS NEEDED
     Dates: start: 20010101
  3. LIPITOR [Concomitant]
     Dosage: 80 MG, UNK
  4. LEVOXYL [Concomitant]
     Dosage: 150 UG, UNK
  5. LEVOXYL [Concomitant]
     Dosage: 150 UG, UNK
  6. DIOVAN [Concomitant]
     Dosage: 320 MG, UNK
  7. BUMETANIDE [Concomitant]
     Dosage: 1 MG, 2/D
  8. CALCITRIOL [Concomitant]
     Dosage: 0.25 UG, UNK
  9. COLCHICINE [Concomitant]
  10. LANTUS [Concomitant]

REACTIONS (5)
  - CATARACT [None]
  - EYE HAEMORRHAGE [None]
  - GOUT [None]
  - MYOCARDIAL INFARCTION [None]
  - THYROIDECTOMY [None]
